FAERS Safety Report 4809811-1 (Version None)
Quarter: 2005Q4

REPORT INFORMATION
  Report Type: 
  Country: None (occurrence: None)
  Receive Date: 20051024
  Receipt Date: 20051024
  Transmission Date: 20060501
  Serious: Yes (Hospitalization, Other)
  Sender: FDA-Public Use
  Company Number: None

PATIENT
  Sex: Male
  Weight: 90 kg

DRUGS (6)
  1. TEMOZOLOMIDE [Suspect]
     Indication: GLIOBLASTOMA MULTIFORME
     Dosage: SEE IMAGE
     Dates: start: 20050730, end: 20050919
  2. TEMOZOLOMIDE [Suspect]
     Indication: GLIOBLASTOMA MULTIFORME
     Dosage: SEE IMAGE
     Dates: start: 20050731
  3. IRINOTECAN HCL [Suspect]
     Dosage: SEE IMAGE
     Dates: start: 20050731
  4. RADIATION THERAPY [Suspect]
     Dosage: SEE IMAGE
     Dates: start: 20050731
  5. ZOFRAN [Concomitant]
  6. ZOLOFT [Concomitant]

REACTIONS (1)
  - CONVULSION [None]
